FAERS Safety Report 23294298 (Version 1)
Quarter: 2023Q4

REPORT INFORMATION
  Report Type: Spontaneous
  Country: None (occurrence: US)
  Receive Date: 20231213
  Receipt Date: 20231213
  Transmission Date: 20240110
  Serious: No
  Sender: FDA-Public Use
  Company Number: US-Harrow Eye-2149329

PATIENT
  Age: 17 Year
  Sex: Male
  Weight: 56 kg

DRUGS (12)
  1. MOXEZA [Suspect]
     Active Substance: MOXIFLOXACIN HYDROCHLORIDE
     Indication: Cystic fibrosis
  2. TIGECYCLINE [Suspect]
     Active Substance: TIGECYCLINE
  3. AMIKACIN SULFATE [Suspect]
     Active Substance: AMIKACIN SULFATE
  4. AZITHROMYCIN [Suspect]
     Active Substance: AZITHROMYCIN
  5. CEFOXITIN [Suspect]
     Active Substance: CEFOXITIN SODIUM
  6. IMIPENEM [Suspect]
     Active Substance: IMIPENEM
  7. MEROPENEM [Suspect]
     Active Substance: MEROPENEM
  8. CIPROFLOXACIN [Suspect]
     Active Substance: CIPROFLOXACIN
  9. CLARITHROMYCIN [Suspect]
     Active Substance: CLARITHROMYCIN
  10. LINEZOLID [Suspect]
     Active Substance: LINEZOLID
  11. MINOCYCLINE [Suspect]
     Active Substance: MINOCYCLINE HYDROCHLORIDE
  12. SULFAMETHOXAZOLE\TRIMETHOPRIM [Suspect]
     Active Substance: SULFAMETHOXAZOLE\TRIMETHOPRIM

REACTIONS (1)
  - Drug intolerance [Unknown]
